FAERS Safety Report 5623166-4 (Version None)
Quarter: 2008Q1

REPORT INFORMATION
  Report Type: 
  Country: None (occurrence: None)
  Receive Date: 20080212
  Receipt Date: 20080128
  Transmission Date: 20080703
  Serious: Yes (Disabling)
  Sender: FDA-Public Use
  Company Number: GB-ELI_LILLY_AND_COMPANY-GB200708003831

PATIENT
  Sex: Male
  Weight: 90 kg

DRUGS (5)
  1. HUMULIN N [Suspect]
     Dosage: 20 D/F, DAILY (1/D)
     Route: 058
     Dates: end: 20071108
  2. HUMULIN N [Suspect]
     Dosage: 13 D/F, DAILY (1/D)
     Route: 058
     Dates: end: 20071108
  3. HUMULIN R [Suspect]
     Dosage: 10 D/F, DAILY (1/D)
     Route: 058
     Dates: end: 20071108
  4. HUMULIN R [Suspect]
     Dosage: 4 D/F, DAILY (1/D)
     Route: 058
     Dates: end: 20071108
  5. INSULIN GLARGINE [Concomitant]
     Dosage: UNK, UNKNOWN
     Route: 065

REACTIONS (2)
  - FOLLICULITIS [None]
  - INJECTION SITE RASH [None]
